FAERS Safety Report 4283651-7 (Version None)
Quarter: 2004Q1

REPORT INFORMATION
  Report Type: 
  Country: None (occurrence: None)
  Receive Date: 20040202
  Receipt Date: 20031120
  Transmission Date: 20041129
  Serious: Yes (Hospitalization)
  Sender: FDA-Public Use
  Company Number: AT-ROCHE-352136

PATIENT
  Age: 59 Year
  Sex: Male
  Weight: 70 kg

DRUGS (12)
  1. DACLIZUMAB [Suspect]
     Dosage: ADMINISTERED 24 HOURS PRE-TRANSPLANT.
     Route: 042
     Dates: start: 20031011, end: 20031011
  2. DACLIZUMAB [Suspect]
     Dosage: ADMINIISTERED EVERY TWO WEEKS FOR A TOTAL OF FOUR DOSES.
     Route: 042
     Dates: start: 20031025, end: 20031209
  3. MYCOPHENOLATE MOFETIL [Suspect]
     Route: 048
     Dates: start: 20031011
  4. SIROLIMUS [Suspect]
     Route: 048
     Dates: start: 20031015
  5. PREDNISOLONE [Suspect]
     Route: 048
     Dates: start: 20031015
  6. PREDNISOLONE [Suspect]
     Route: 048
     Dates: start: 20040115
  7. PANTOLOC [Concomitant]
     Route: 048
     Dates: start: 20031015
  8. DILATREND [Concomitant]
     Route: 048
     Dates: start: 20031015
  9. NORVASC [Concomitant]
     Route: 048
     Dates: start: 20031015
  10. COTRIDIN [Concomitant]
     Route: 048
     Dates: start: 20031015
  11. THROMBO ASS [Concomitant]
     Route: 048
     Dates: start: 20031015
  12. INSULIN NOVOMIX [Concomitant]
     Dosage: DIVIDED INTO DOSES ON DEMAND.
     Route: 048
     Dates: start: 20031115

REACTIONS (3)
  - CONDITION AGGRAVATED [None]
  - DIABETES MELLITUS NON-INSULIN-DEPENDENT [None]
  - RENAL CELL CARCINOMA STAGE UNSPECIFIED [None]
